FAERS Safety Report 10540955 (Version 2)
Quarter: 2014Q4

REPORT INFORMATION
  Report Type: Spontaneous
  Country: JP (occurrence: JP)
  Receive Date: 20141024
  Receipt Date: 20141031
  Transmission Date: 20150529
  Serious: Yes (Other)
  Sender: FDA-Public Use
  Company Number: JP-PFIZER INC-2014291095

PATIENT
  Age: 25 Year
  Sex: Male

DRUGS (7)
  1. SOLU-MEDROL [Suspect]
     Active Substance: METHYLPREDNISOLONE SODIUM SUCCINATE
     Indication: KIDNEY TRANSPLANT REJECTION
     Dosage: 1500 MG, DAILY
     Route: 042
     Dates: start: 200809
  2. ANTI-HUMAN THYMOCYTE IMMUNOGLOBULIN [Suspect]
     Active Substance: THYMOCYTE IMMUNE GLOBULIN NOS
     Dosage: 1.5 MG/KG, UNK
  3. METHYLPREDNISOLONE. [Concomitant]
     Active Substance: METHYLPREDNISOLONE
     Dosage: 16 MG, DAILY
  4. MYCOPHENOLATE MOFETIL. [Concomitant]
     Active Substance: MYCOPHENOLATE MOFETIL
     Dosage: 500 MG, DAILY
  5. TACROLIMUS. [Concomitant]
     Active Substance: TACROLIMUS
  6. GUSPERIMUS [Suspect]
     Active Substance: GUSPERIMUS
     Indication: KIDNEY TRANSPLANT REJECTION
     Dosage: 5 MG/KG, UNK
  7. ANTI-HUMAN THYMOCYTE IMMUNOGLOBULIN [Suspect]
     Active Substance: THYMOCYTE IMMUNE GLOBULIN NOS
     Indication: KIDNEY TRANSPLANT REJECTION
     Dosage: 1.5 MG/KG, UNK

REACTIONS (3)
  - White blood cell count decreased [Unknown]
  - Cytomegalovirus viraemia [Unknown]
  - Flushing [Unknown]

NARRATIVE: CASE EVENT DATE: 20080901
